FAERS Safety Report 20012823 (Version 3)
Quarter: 2021Q4

REPORT INFORMATION
  Report Type: Spontaneous
  Country: RU (occurrence: RU)
  Receive Date: 20211029
  Receipt Date: 20211211
  Transmission Date: 20220303
  Serious: Yes (Other)
  Sender: FDA-Public Use
  Company Number: RU-AMGEN-RUSSP2021164719

PATIENT

DRUGS (1)
  1. NPLATE [Suspect]
     Active Substance: ROMIPLOSTIM
     Indication: Immune thrombocytopenia
     Dosage: UNK UNK, QWK
     Route: 058

REACTIONS (9)
  - Withdrawal syndrome [Unknown]
  - Rebound effect [Recovered/Resolved]
  - Therapeutic product effect decreased [Unknown]
  - Decreased appetite [Unknown]
  - Therapy non-responder [Unknown]
  - Therapeutic product effect incomplete [Unknown]
  - Thrombocytosis [Recovered/Resolved]
  - Headache [Unknown]
  - Pain in extremity [Unknown]
